FAERS Safety Report 25320023 (Version 1)
Quarter: 2025Q2

REPORT INFORMATION
  Report Type: Spontaneous
  Country: US (occurrence: US)
  Receive Date: 20250515
  Receipt Date: 20250515
  Transmission Date: 20250716
  Serious: No
  Sender: TEIKOKU
  Company Number: US-TPU-TPU-2025-00211

PATIENT
  Age: 57 Year
  Sex: Male

DRUGS (1)
  1. LIDOCAINE PATCH [Suspect]
     Active Substance: LIDOCAINE
     Indication: Product used for unknown indication

REACTIONS (2)
  - Product dose omission issue [Not Recovered/Not Resolved]
  - Inability to afford medication [Unknown]

NARRATIVE: CASE EVENT DATE: 20250301
